FAERS Safety Report 5872183-8 (Version None)
Quarter: 2008Q3

REPORT INFORMATION
  Report Type: 
  Country: None (occurrence: None)
  Receive Date: 20080905
  Receipt Date: 20080902
  Transmission Date: 20090109
  Serious: Yes (Death, Hospitalization)
  Sender: FDA-Public Use
  Company Number: JP-JNJFOC-20080900690

PATIENT
  Sex: Female
  Weight: 44 kg

DRUGS (7)
  1. ITRIZOLE [Suspect]
     Indication: FEBRILE NEUTROPENIA
  2. FAMOTIDINE [Concomitant]
     Indication: PROPHYLAXIS
     Route: 048
  3. ACYCLOVIR [Concomitant]
     Indication: PROPHYLAXIS
     Route: 048
  4. ALBUMIN (HUMAN) [Concomitant]
     Indication: PLATELET COUNT DECREASED
     Route: 042
  5. SOLU-MEDROL [Concomitant]
     Indication: GRAFT VERSUS HOST DISEASE
     Route: 042
  6. DENOSINE [Concomitant]
     Indication: GRAFT VERSUS HOST DISEASE
     Route: 042
  7. PROGRAF [Concomitant]
     Indication: GRAFT VERSUS HOST DISEASE
     Route: 042

REACTIONS (2)
  - GRAFT VERSUS HOST DISEASE [None]
  - HEPATIC FAILURE [None]
